FAERS Safety Report 12048020 (Version 2)
Quarter: 2016Q2

REPORT INFORMATION
  Report Type: Spontaneous
  Country: IT (occurrence: IT)
  Receive Date: 20160209
  Receipt Date: 20160405
  Transmission Date: 20160815
  Serious: Yes (Hospitalization)
  Sender: FDA-Public Use
  Company Number: IT-009507513-1602ITA003954

PATIENT
  Age: 88 Year
  Sex: Male

DRUGS (10)
  1. CARDIOASPIRIN [Concomitant]
     Active Substance: ASPIRIN
     Dosage: 100 MG (1 DF), UNK
     Route: 048
  2. PERMIXON [Concomitant]
     Active Substance: SAW PALMETTO
     Dosage: 1 DF, UNK
     Route: 048
  3. TERAZOSIN HYDROCHLORIDE. [Concomitant]
     Active Substance: TERAZOSIN HYDROCHLORIDE
     Dosage: 1 DF, UNK
     Route: 048
  4. LASIX [Concomitant]
     Active Substance: FUROSEMIDE
     Dosage: 25 MG (1 DF), UNK
     Route: 048
  5. SPIRIVA [Concomitant]
     Active Substance: TIOTROPIUM BROMIDE MONOHYDRATE
     Dosage: UNK
  6. DIAMICRON [Concomitant]
     Active Substance: GLICLAZIDE
     Dosage: 2 DF, UNK
     Route: 048
  7. NEO-LOTAN [Suspect]
     Active Substance: LOSARTAN POTASSIUM
     Indication: HYPERTENSION
     Dosage: 25 MG DAILY
     Route: 048
     Dates: start: 20150101
  8. ALDACTONE [Interacting]
     Active Substance: SPIRONOLACTONE
     Indication: HYPERTENSION
     Dosage: 100 MG (1 DF) DAILY
     Route: 048
     Dates: start: 20150101, end: 20160122
  9. POTASSIUM CHLORIDE. [Interacting]
     Active Substance: POTASSIUM CHLORIDE
     Indication: HYPERTENSION
     Dosage: 600 MG (1 DF) DAILY
     Route: 048
     Dates: start: 20150101, end: 20160122
  10. ALIFLUS [Concomitant]
     Active Substance: FLUTICASONE PROPIONATE\SALMETEROL XINAFOATE
     Dosage: UNK

REACTIONS (2)
  - Drug interaction [Recovered/Resolved]
  - Hyperkalaemia [Recovered/Resolved]

NARRATIVE: CASE EVENT DATE: 20160122
